FAERS Safety Report 5153378-8 (Version None)
Quarter: 2006Q4

REPORT INFORMATION
  Report Type: 
  Country: None (occurrence: None)
  Receive Date: 20061117
  Receipt Date: 20061116
  Transmission Date: 20070319
  Serious: Yes (Death)
  Sender: FDA-Public Use
  Company Number: CO-BOEHRINGER INGELHEIM PHARMACEUTICALS, INC.-2006-BP-13470CL

PATIENT
  Age: 85 Year
  Sex: Male

DRUGS (3)
  1. MIRAPEX [Suspect]
     Indication: RESTLESS LEGS SYNDROME
     Route: 048
     Dates: start: 20060224, end: 20060501
  2. GABAPENTINA (GABAPENTINE) [Concomitant]
     Indication: RESTLESS LEGS SYNDROME
     Dates: start: 20051211
  3. PAROXETINA (PAROXETINE) [Concomitant]
     Indication: DEPRESSION
     Dates: start: 20060127

REACTIONS (2)
  - COLON CANCER [None]
  - METASTASES TO LIVER [None]
